FAERS Safety Report 6492621-X (Version None)
Quarter: 2009Q4

REPORT INFORMATION
  Report Type: 
  Country: None (occurrence: None)
  Receive Date: 20091214
  Receipt Date: 20091204
  Transmission Date: 20100525
  Serious: Yes (Other)
  Sender: FDA-Public Use
  Company Number: JP-ASTRAZENECA-2009SE31048

PATIENT
  Age: 58 Year
  Sex: Male

DRUGS (3)
  1. ECARD [Suspect]
     Indication: HYPERTENSION
     Route: 048
     Dates: start: 20090606, end: 20090801
  2. GASTER [Concomitant]
     Route: 048
  3. JUVELA N [Concomitant]
     Route: 048

REACTIONS (1)
  - THALAMUS HAEMORRHAGE [None]
